FAERS Safety Report 7956462-6 (Version None)
Quarter: 2011Q4

REPORT INFORMATION
  Report Type: 
  Country: None (occurrence: None)
  Receive Date: 20111205
  Receipt Date: 20111128
  Transmission Date: 20120403
  Serious: Yes (Death, Hospitalization)
  Sender: FDA-Public Use
  Company Number: US-ASTELLAS-2011US007924

PATIENT
  Sex: Male

DRUGS (4)
  1. FENTANYL [Concomitant]
     Indication: PAIN
     Dosage: UNK
     Route: 050
     Dates: end: 20111124
  2. LORTAB [Concomitant]
     Indication: PAIN
     Dosage: 500 MG, PRN
     Route: 048
     Dates: end: 20111124
  3. PROGRAF [Suspect]
     Indication: RENAL TRANSPLANT
     Dosage: 2 MG, BID
     Route: 048
     Dates: start: 20100119, end: 20111124
  4. MYFORTIC [Concomitant]
     Indication: RENAL TRANSPLANT
     Dosage: 720 MG, BID
     Route: 048
     Dates: start: 20100119, end: 20111124

REACTIONS (2)
  - DEATH [None]
  - BLOOD CREATININE INCREASED [None]
